FAERS Safety Report 7595745-9 (Version None)
Quarter: 2011Q3

REPORT INFORMATION
  Report Type: 
  Country: None (occurrence: None)
  Receive Date: 20110707
  Receipt Date: 20110705
  Transmission Date: 20111222
  Serious: Yes (Other)
  Sender: FDA-Public Use
  Company Number: JP-PFIZER INC-2011150441

PATIENT
  Age: 78 Year
  Sex: Male

DRUGS (6)
  1. LYRICA [Suspect]
     Dosage: 150 MG/DAY
     Route: 048
     Dates: start: 20110208, end: 20110609
  2. TENORMIN [Concomitant]
     Dosage: 50 MG/DAY
     Route: 048
  3. ENALAPRIL MALEATE [Concomitant]
     Dosage: 5 MG/DAY
     Route: 048
  4. MICARDIS [Concomitant]
     Dosage: 80 MG/DAY
     Route: 048
  5. LANSOPRAZOLE [Concomitant]
     Dosage: 30 MG/DAY
     Route: 048
  6. GASMOTIN [Concomitant]
     Dosage: 30 MG/DAY
     Route: 048

REACTIONS (3)
  - UROBILINOGEN URINE INCREASED [None]
  - URINE COLOUR ABNORMAL [None]
  - HEPATIC ENZYME INCREASED [None]
